APPROVED DRUG PRODUCT: DOXORUBICIN HYDROCHLORIDE
Active Ingredient: DOXORUBICIN HYDROCHLORIDE
Strength: 2MG/ML
Dosage Form/Route: INJECTABLE;INJECTION
Application: A203622 | Product #001 | TE Code: AP
Applicant: ACTAVIS INC
Approved: Jun 27, 2014 | RLD: No | RS: No | Type: RX